FAERS Safety Report 7371452-2 (Version None)
Quarter: 2011Q1

REPORT INFORMATION
  Report Type: 
  Country: None (occurrence: None)
  Receive Date: 20110324
  Receipt Date: 20110316
  Transmission Date: 20110831
  Serious: Yes (Hospitalization, Other)
  Sender: FDA-Public Use
  Company Number: US-NOVOPROD-322846

PATIENT
  Age: 76 Year
  Sex: Male

DRUGS (1)
  1. VICTOZA [Suspect]
     Indication: TYPE 2 DIABETES MELLITUS
     Dosage: UNK
     Route: 058
     Dates: start: 20100312, end: 20110101

REACTIONS (6)
  - PANCREATITIS ACUTE [None]
  - RETROPERITONEAL NEOPLASM [None]
  - METABOLIC ACIDOSIS [None]
  - PROSTATITIS [None]
  - RENAL FAILURE ACUTE [None]
  - GOUTY ARTHRITIS [None]
